FAERS Safety Report 10449038 (Version 1)
Quarter: 2014Q3

REPORT INFORMATION
  Report Type: Spontaneous
  Country: AR (occurrence: AR)
  Receive Date: 20140912
  Receipt Date: 20140912
  Transmission Date: 20150326
  Serious: Yes (Other)
  Sender: FDA-Public Use
  Company Number: AR-AMGEN-ARGSP2014069411

PATIENT
  Age: 65 Year
  Sex: Female

DRUGS (3)
  1. DENOSUMAB [Concomitant]
     Active Substance: DENOSUMAB
     Indication: OSTEOPOROSIS
     Dosage: EVERY 6 MONTHS
  2. METHOTREXATE SODIUM. [Suspect]
     Active Substance: METHOTREXATE SODIUM
     Indication: RHEUMATOID ARTHRITIS
     Dosage: 15 MG, WEEKLY
     Route: 065
  3. ENBREL [Suspect]
     Active Substance: ETANERCEPT
     Indication: RHEUMATOID ARTHRITIS
     Dosage: 50 MG, WEEKLY
     Route: 065
     Dates: start: 20060918

REACTIONS (6)
  - Kidney infection [Recovered/Resolved]
  - Influenza [Recovered/Resolved]
  - Multiple fractures [Unknown]
  - Cough [Recovered/Resolved]
  - Decreased immune responsiveness [Recovered/Resolved]
  - Device occlusion [Not Recovered/Not Resolved]

NARRATIVE: CASE EVENT DATE: 201305
